FAERS Safety Report 4887295-5 (Version None)
Quarter: 2005Q4

REPORT INFORMATION
  Report Type: 
  Country: None (occurrence: None)
  Receive Date: 20051221
  Receipt Date: 20051010
  Transmission Date: 20060501
  Serious: No
  Sender: FDA-Public Use
  Company Number: US-YAMANOUCHI-YPA20050526

PATIENT
  Age: 79 Year
  Sex: Female

DRUGS (2)
  1. VESICARE [Suspect]
     Indication: MICTURITION DISORDER
     Dates: start: 20051005, end: 20051010
  2. LEVAQUIN [Suspect]
     Dates: start: 20051003

REACTIONS (7)
  - ANOREXIA [None]
  - CONSTIPATION [None]
  - DRY MOUTH [None]
  - EYELID FUNCTION DISORDER [None]
  - NAUSEA [None]
  - VOMITING [None]
  - WEIGHT DECREASED [None]
